FAERS Safety Report 12632628 (Version 2)
Quarter: 2016Q3

REPORT INFORMATION
  Report Type: Spontaneous
  Country: US (occurrence: US)
  Receive Date: 20160808
  Receipt Date: 20160808
  Transmission Date: 20161109
  Serious: No
  Sender: FDA-Public Use
  Company Number: US-BEH-2015056294

PATIENT
  Age: 66 Year
  Sex: Female
  Weight: 88 kg

DRUGS (17)
  1. AZITHROMYCIN ANHYDROUS. [Concomitant]
     Active Substance: AZITHROMYCIN ANHYDROUS
  2. LIDOCAINE/PRILOCAINE [Concomitant]
     Active Substance: LIDOCAINE\PRILOCAINE
  3. FLONASE [Concomitant]
     Active Substance: FLUTICASONE PROPIONATE
  4. HIZENTRA [Suspect]
     Active Substance: HUMAN IMMUNOGLOBULIN G
     Indication: IMMUNODEFICIENCY COMMON VARIABLE
     Route: 058
  5. LIDOCAINE. [Concomitant]
     Active Substance: LIDOCAINE
  6. AZELASTINE [Concomitant]
     Active Substance: AZELASTINE
  7. IPRATROPIUM-ALBUTEROL [Concomitant]
     Active Substance: ALBUTEROL\IPRATROPIUM
  8. ACETAMINOPHEN. [Concomitant]
     Active Substance: ACETAMINOPHEN
  9. PROAIR HFA [Concomitant]
     Active Substance: ALBUTEROL SULFATE
  10. BUDESONIDE. [Concomitant]
     Active Substance: BUDESONIDE
  11. PROLASTIN [Concomitant]
     Active Substance: .ALPHA.1-PROTEINASE INHIBITOR HUMAN
  12. VITAMIN C [Concomitant]
     Active Substance: ASCORBIC ACID
  13. LEVOTHYROXINE. [Concomitant]
     Active Substance: LEVOTHYROXINE
  14. MONTELUKAST SODIUM. [Concomitant]
     Active Substance: MONTELUKAST SODIUM
  15. DIPHENHYDRAMINE. [Concomitant]
     Active Substance: DIPHENHYDRAMINE
  16. EPIPEN [Concomitant]
     Active Substance: EPINEPHRINE
  17. PREDNISONE. [Concomitant]
     Active Substance: PREDNISONE

REACTIONS (2)
  - Oropharyngeal pain [Unknown]
  - Nasopharyngitis [Unknown]

NARRATIVE: CASE EVENT DATE: 20151120
